FAERS Safety Report 23174123 (Version 1)
Quarter: 2023Q4

REPORT INFORMATION
  Report Type: Spontaneous
  Country: US (occurrence: None)
  Receive Date: 20231112
  Receipt Date: 20231112
  Transmission Date: 20240109
  Serious: Yes (Other)
  Sender: FDA-Public Use
  Company Number: US-ENDO-CASE-0040764

PATIENT
  Sex: Female

DRUGS (1)
  1. RANITIDINE HYDROCHLORIDE [Suspect]
     Active Substance: RANITIDINE HYDROCHLORIDE

REACTIONS (15)
  - Abortion spontaneous [Unknown]
  - Suicidal ideation [Unknown]
  - Ill-defined disorder [Unknown]
  - Irritable bowel syndrome [Unknown]
  - Gastrooesophageal reflux disease [Unknown]
  - Infection [Unknown]
  - Ectopic pregnancy [Unknown]
  - Depression [Unknown]
  - Disturbance in attention [Unknown]
  - Asthenia [Unknown]
  - Malnutrition [Unknown]
  - Attention deficit hyperactivity disorder [Unknown]
  - Crohn^s disease [Unknown]
  - Ulcer [Unknown]
  - Immune system disorder [Unknown]
